FAERS Safety Report 21727362 (Version 1)
Quarter: 2022Q4

REPORT INFORMATION
  Report Type: Spontaneous
  Country: US (occurrence: None)
  Receive Date: 20221213
  Receipt Date: 20221213
  Transmission Date: 20230113
  Serious: Yes (unspecified)
  Sender: FDA-Public Use
  Company Number: None

PATIENT
  Age: 61 Year
  Sex: Male
  Weight: 83.25 kg

DRUGS (9)
  1. LURASIDONE [Suspect]
     Active Substance: LURASIDONE
     Indication: Bipolar disorder
     Dosage: FREQUENCY : DAILY;?
     Route: 048
     Dates: start: 20221130, end: 20221201
  2. lamotrigine 25 mg nightly [Concomitant]
     Dates: start: 20221126
  3. lidocaine 4% patch daily [Concomitant]
     Dates: start: 20221129, end: 20221205
  4. liothyronine 50 mcg daily [Concomitant]
     Dates: start: 20221126
  5. Lithium ER 1050 mg nightly [Concomitant]
     Dates: start: 20221129
  6. lorazepam 1 mg tid [Concomitant]
     Dates: start: 20221130, end: 20221130
  7. Metformin ER 1000 mg daily [Concomitant]
     Dates: start: 20221126
  8. pramipexole 3 mg nightly [Concomitant]
     Dates: start: 20221126
  9. tadalafil 5 mg daily [Concomitant]
     Dates: start: 20221126

REACTIONS (6)
  - Hypersomnia [None]
  - Confusional state [None]
  - Tremor [None]
  - Restlessness [None]
  - Movement disorder [None]
  - Dyskinesia [None]

NARRATIVE: CASE EVENT DATE: 20221130
